FAERS Safety Report 23359375 (Version 1)
Quarter: 2024Q1

REPORT INFORMATION
  Report Type: Spontaneous
  Country: PT (occurrence: PT)
  Receive Date: 20240103
  Receipt Date: 20240103
  Transmission Date: 20240410
  Serious: Yes (Other)
  Sender: FDA-Public Use
  Company Number: PT-MYLANLABS-2023M1082304

PATIENT
  Age: 65 Year
  Sex: Female
  Weight: 74 kg

DRUGS (31)
  1. Hydiphen [Concomitant]
     Dosage: 100 MILLIGRAM, QD
     Route: 042
     Dates: start: 20230202, end: 20230202
  2. Hydiphen [Concomitant]
     Dosage: 100 MILLIGRAM, QD
     Route: 042
     Dates: start: 20230208, end: 20230208
  3. Hydiphen [Concomitant]
     Dosage: 125 MILLIGRAM, QD
     Route: 042
     Dates: start: 20230203, end: 20230203
  4. Hydiphen [Concomitant]
     Dosage: 125 MILLIGRAM, QD
     Route: 042
     Dates: start: 20230207, end: 20230207
  5. Hydiphen [Concomitant]
     Dosage: 150 MILLIGRAM, QD
     Route: 042
     Dates: start: 20230204, end: 20230206
  6. Hydiphen [Concomitant]
     Dosage: 25 MILLIGRAM, QD
     Route: 042
     Dates: start: 20230130, end: 20230130
  7. Hydiphen [Concomitant]
     Dosage: 25 MILLIGRAM, QD
     Route: 042
     Dates: start: 20230211, end: 20230211
  8. Hydiphen [Concomitant]
     Indication: Major depression
     Dosage: 25 MILLIGRAM, QD
     Route: 048
     Dates: start: 20230207, end: 20230207
  9. Hydiphen [Concomitant]
     Dosage: 25 MILLIGRAM, QD
     Route: 048
     Dates: start: 20230210, end: 20230211
  10. Hydiphen [Concomitant]
     Dosage: 25 MILLIGRAM, QD
     Route: 048
     Dates: start: 20230302, end: 20230303
  11. Hydiphen [Concomitant]
     Dosage: 25 MILLIGRAM, BID
     Route: 048
     Dates: start: 20230304, end: 20230306
  12. Hydiphen [Concomitant]
     Dosage: 50 MILLIGRAM, QD
     Route: 042
     Dates: start: 20230131, end: 20230131
  13. Hydiphen [Concomitant]
     Dosage: 50 MILLIGRAM, QD
     Route: 042
     Dates: start: 20230210, end: 20230210
  14. Hydiphen [Concomitant]
     Dosage: 50 MILLIGRAM, QD
     Route: 048
     Dates: start: 20230208, end: 20230208
  15. Hydiphen [Concomitant]
     Dosage: 50 MILLIGRAM, QD
     Route: 048
     Dates: start: 20230302, end: 20230303
  16. Hydiphen [Concomitant]
     Dosage: 50 MILLIGRAM
     Route: 048
     Dates: start: 20230212, end: 20230301
  17. Hydiphen [Concomitant]
     Dosage: 75 MILLIGRAM, QD
     Route: 042
     Dates: start: 20230201, end: 20230201
  18. Hydiphen [Concomitant]
     Dosage: 75 MILLIGRAM, QD
     Route: 042
     Dates: start: 20230209, end: 20230209
  19. Hydiphen [Concomitant]
     Dosage: 75 MILLIGRAM, QD
     Route: 048
     Dates: start: 20230209, end: 20230210
  20. Hydiphen [Concomitant]
     Dosage: 75 MILLIGRAM, QD
     Route: 048
     Dates: start: 20230211, end: 20230211
  21. LITHOCARB [Concomitant]
     Indication: Major depression
     Dosage: 400 MILLIGRAM, QD
     Route: 048
     Dates: start: 20230213, end: 20230226
  22. SULPIRIDE [Concomitant]
     Active Substance: SULPIRIDE
     Indication: Major depression
     Dosage: 200 MILLIGRAM, QD
     Route: 048
     Dates: start: 20230222, end: 20230306
  23. FLUOXETINE [Interacting]
     Active Substance: FLUOXETINE HYDROCHLORIDE
     Indication: Major depression
     Dosage: 20 MILLIGRAM, QD
     Route: 048
     Dates: start: 20230227, end: 20230503
  24. MIRTAZAPINE [Interacting]
     Active Substance: MIRTAZAPINE
     Indication: Product used for unknown indication
     Dosage: 30 MILLIGRAM, QD
     Route: 048
     Dates: start: 20230125, end: 20230212
  25. MIRTAZAPINE [Interacting]
     Active Substance: MIRTAZAPINE
     Dosage: 45 MILLIGRAM, QD
     Route: 048
     Dates: start: 20230227
  26. MIRTAZAPINE [Interacting]
     Active Substance: MIRTAZAPINE
     Dosage: 45 MILLIGRAM, QD
     Route: 048
     Dates: end: 20230124
  27. OLANZAPINE [Interacting]
     Active Substance: OLANZAPINE
     Indication: Product used for unknown indication
     Dosage: 10 MILLIGRAM, QD
     Route: 048
     Dates: start: 20230118, end: 20230220
  28. QUETIAPINE [Interacting]
     Active Substance: QUETIAPINE
     Indication: Product used for unknown indication
     Dosage: 300 MILLIGRAM, QD
     Route: 048
     Dates: start: 20230118, end: 20230209
  29. QUETIAPINE [Interacting]
     Active Substance: QUETIAPINE
     Dosage: 50 MILLIGRAM, QD
     Route: 065
     Dates: start: 20230516
  30. VENLAFAXINE [Interacting]
     Active Substance: VENLAFAXINE HYDROCHLORIDE
     Indication: Major depression
     Dosage: 150 MILLIGRAM, QD
     Route: 048
     Dates: end: 20230131
  31. VENLAFAXINE [Interacting]
     Active Substance: VENLAFAXINE HYDROCHLORIDE
     Dosage: 37.5 MILLIGRAM, QD
     Route: 048
     Dates: start: 20230201, end: 20230209

REACTIONS (6)
  - Pulmonary embolism [Recovered/Resolved]
  - Major depression [Recovered/Resolved]
  - Multimorbidity [Recovered/Resolved]
  - Adverse event [Recovered/Resolved]
  - Drug ineffective [Recovered/Resolved]
  - Potentiating drug interaction [Recovered/Resolved]

NARRATIVE: CASE EVENT DATE: 20230213
